FAERS Safety Report 24463590 (Version 1)
Quarter: 2024Q4

REPORT INFORMATION
  Report Type: Report from Study
  Country: US (occurrence: US)
  Receive Date: 20241018
  Receipt Date: 20241018
  Transmission Date: 20250114
  Serious: No
  Sender: ROCHE
  Company Number: US-ROCHE-3483652

PATIENT
  Age: 76 Year
  Sex: Female
  Weight: 64.86 kg

DRUGS (10)
  1. XOLAIR [Suspect]
     Active Substance: OMALIZUMAB
     Indication: Idiopathic urticaria
     Route: 058
     Dates: start: 20210406
  2. XOLAIR [Suspect]
     Active Substance: OMALIZUMAB
     Route: 058
     Dates: start: 202203
  3. MUPIROCIN [Concomitant]
     Active Substance: MUPIROCIN
  4. PREDNISOLONE [Concomitant]
     Active Substance: PREDNISOLONE
  5. EZETIMIBE [Concomitant]
     Active Substance: EZETIMIBE
  6. PREDNISONE [Concomitant]
     Active Substance: PREDNISONE
  7. ATENOLOL [Concomitant]
     Active Substance: ATENOLOL
  8. OMEPRAZOLE [Concomitant]
     Active Substance: OMEPRAZOLE
  9. AMLODIPINE [Concomitant]
     Active Substance: AMLODIPINE BESYLATE
  10. OXYCODONE [Concomitant]
     Active Substance: OXYCODONE

REACTIONS (4)
  - Rash [Not Recovered/Not Resolved]
  - Contusion [Not Recovered/Not Resolved]
  - Product dose omission issue [Unknown]
  - Off label use [Unknown]

NARRATIVE: CASE EVENT DATE: 20231128
